FAERS Safety Report 12143453 (Version 1)
Quarter: 2016Q1

REPORT INFORMATION
  Report Type: Spontaneous
  Country: US (occurrence: US)
  Receive Date: 20160304
  Receipt Date: 20160304
  Transmission Date: 20160526
  Serious: No
  Sender: FDA-Public Use
  Company Number: US-JNJFOC-20160124950

PATIENT
  Age: 60 Year
  Sex: Female
  Weight: 78.02 kg

DRUGS (4)
  1. VITAMINS NOS [Concomitant]
     Active Substance: VITAMINS
     Indication: VITAMIN SUPPLEMENTATION
     Dosage: 1 YEAR
     Route: 065
  2. DAIRY RELIEF [Concomitant]
     Indication: LACTOSE INTOLERANCE
     Route: 065
  3. MENS ROGAINE EXTRA STRENGTH [Suspect]
     Active Substance: MINOXIDIL
     Indication: ALOPECIA
     Dosage: 2 FULL CAPFULS, EVERY 3 DAYS
     Route: 061
  4. MENS ROGAINE EXTRA STRENGTH [Suspect]
     Active Substance: MINOXIDIL
     Route: 061

REACTIONS (8)
  - Drug administered at inappropriate site [Unknown]
  - Off label use [Unknown]
  - Wrong patient received medication [Unknown]
  - Product use issue [Unknown]
  - Nail ridging [Not Recovered/Not Resolved]
  - Onychoclasis [Not Recovered/Not Resolved]
  - Hair colour changes [Not Recovered/Not Resolved]
  - Alopecia [Recovering/Resolving]
